FAERS Safety Report 10064631 (Version 1)
Quarter: 2014Q2

REPORT INFORMATION
  Report Type: Spontaneous
  Country: US (occurrence: None)
  Receive Date: 20140407
  Receipt Date: 20140407
  Transmission Date: 20141212
  Serious: Yes (Life-Threatening, Hospitalization)
  Sender: FDA-Public Use
  Company Number: None

PATIENT
  Age: 78 Year
  Sex: Male
  Weight: 81.3 kg

DRUGS (15)
  1. RIVAROXABAN [Suspect]
     Indication: ATRIAL FIBRILLATION
     Route: 048
     Dates: start: 20140217, end: 20140323
  2. JANUMET [Concomitant]
  3. GLIMEPRIDE [Concomitant]
  4. FUROSEMIDE [Concomitant]
  5. TAMSULOSIN [Concomitant]
  6. SIMVASTATIN [Concomitant]
  7. PANTOPRAZOLE [Concomitant]
  8. FINASTERIDE [Concomitant]
  9. THERAGAN [Concomitant]
  10. ASPIRIN EC [Concomitant]
  11. BENZONATE [Concomitant]
  12. CEFUROXIME [Concomitant]
  13. LEVEMIR FLEXPON [Concomitant]
  14. METOPROLOL SUCCINATE [Concomitant]
  15. PREDNISONE [Concomitant]

REACTIONS (8)
  - Gastrointestinal haemorrhage [None]
  - Coagulopathy [None]
  - Anaemia [None]
  - Mitral valve disease [None]
  - Tricuspid valve incompetence [None]
  - Pulmonary hypertension [None]
  - Circulatory collapse [None]
  - Chest X-ray abnormal [None]
